FAERS Safety Report 18120310 (Version 9)
Quarter: 2021Q3

REPORT INFORMATION
  Report Type: Other
  Country: DE (occurrence: DE)
  Receive Date: 20200806
  Receipt Date: 20210720
  Transmission Date: 20211014
  Serious: Yes (Hospitalization, Other)
  Sender: FDA-Public Use
  Company Number: DE-ROCHE-2650536

PATIENT
  Age: 60 Year
  Sex: Male
  Weight: 59 kg

DRUGS (11)
  1. MICRONOR [Concomitant]
     Active Substance: NORETHINDRONE
     Indication: BLADDER DISORDER
     Route: 048
     Dates: start: 20200124
  2. OCRELIZUMAB. [Suspect]
     Active Substance: OCRELIZUMAB
     Indication: RELAPSING MULTIPLE SCLEROSIS
     Route: 042
     Dates: start: 20190620, end: 20190704
  3. PANTOZOLE [Concomitant]
     Active Substance: PANTOPRAZOLE SODIUM
     Route: 048
  4. RISEDRON [Concomitant]
     Active Substance: RISEDRONATE SODIUM
     Indication: OSTEOPOROSIS
     Route: 048
     Dates: start: 1999
  5. KORTISON [Concomitant]
     Active Substance: CORTISONE ACETATE
     Indication: MULTIPLE SCLEROSIS
  6. AVONEX [Concomitant]
     Active Substance: INTERFERON BETA-1A
     Dates: start: 20140930, end: 201806
  7. SATIVEX [Concomitant]
     Active Substance: NABIXIMOLS
     Indication: SLEEP DISORDER
     Route: 055
     Dates: start: 20181025
  8. OCRELIZUMAB. [Suspect]
     Active Substance: OCRELIZUMAB
     Route: 042
     Dates: start: 20200128
  9. NITROXOLINE [Concomitant]
     Active Substance: NITROXOLINE
  10. DICLOFENAC [Concomitant]
     Active Substance: DICLOFENAC
     Indication: PAIN
     Route: 048
     Dates: start: 2000
  11. SERTRALINE [Concomitant]
     Active Substance: SERTRALINE HYDROCHLORIDE
     Indication: DEPRESSION
     Route: 048
     Dates: start: 20080807

REACTIONS (6)
  - Confusional state [Unknown]
  - Urinary tract infection [Not Recovered/Not Resolved]
  - Circulatory collapse [Recovered/Resolved]
  - Hypertension [Recovered/Resolved]
  - Epilepsy [Recovered/Resolved with Sequelae]
  - Bladder dysfunction [Not Recovered/Not Resolved]

NARRATIVE: CASE EVENT DATE: 20200424
